FAERS Safety Report 4590213-0 (Version None)
Quarter: 2005Q1

REPORT INFORMATION
  Report Type: 
  Country: None (occurrence: None)
  Receive Date: 20050217
  Receipt Date: 20050207
  Transmission Date: 20050727
  Serious: Yes (Other)
  Sender: FDA-Public Use
  Company Number: 2005027058

PATIENT
  Age: 78 Year
  Sex: Female
  Weight: 65.7716 kg

DRUGS (1)
  1. XALATAN [Suspect]
     Indication: GLAUCOMA
     Dosage: 1 DROP (1 DROP, DAILY) OPHTHALMIC
     Route: 047
     Dates: start: 20020101

REACTIONS (5)
  - BURNING SENSATION [None]
  - EYE IRRITATION [None]
  - EYELID DISORDER [None]
  - MACULAR DEGENERATION [None]
  - SKIN BURNING SENSATION [None]
